FAERS Safety Report 23802085 (Version 3)
Quarter: 2024Q3

REPORT INFORMATION
  Report Type: Report from Study
  Country: US (occurrence: US)
  Receive Date: 20240501
  Receipt Date: 20240926
  Transmission Date: 20241017
  Serious: No
  Sender: ROCHE
  Company Number: US-ROCHE-3515715

PATIENT
  Age: 47 Year
  Sex: Female
  Weight: 80.29 kg

DRUGS (2)
  1. OCREVUS [Suspect]
     Active Substance: OCRELIZUMAB
     Indication: Relapsing-remitting multiple sclerosis
     Dosage: HER LAST INFUSION WAS ON 12/OCT/2023. 11/FEB/2020, 15/FEB/2021
     Route: 042
     Dates: start: 20200204
  2. TECFIDERA [Concomitant]
     Active Substance: DIMETHYL FUMARATE

REACTIONS (18)
  - Hypotension [Recovered/Resolved]
  - Diastolic dysfunction [Unknown]
  - Asthenia [Recovered/Resolved]
  - Fatigue [Recovered/Resolved]
  - Dyspnoea [Recovered/Resolved]
  - Therapeutic response shortened [Not Recovered/Not Resolved]
  - COVID-19 [Recovered/Resolved]
  - Upper respiratory tract infection [Unknown]
  - Bronchitis [Unknown]
  - Neck pain [Not Recovered/Not Resolved]
  - Emotional distress [Recovered/Resolved]
  - Pyrexia [Recovered/Resolved]
  - Throat tightness [Unknown]
  - Muscle tightness [Unknown]
  - Infection [Unknown]
  - Memory impairment [Not Recovered/Not Resolved]
  - Musculoskeletal stiffness [Not Recovered/Not Resolved]
  - Drug ineffective [Unknown]

NARRATIVE: CASE EVENT DATE: 20230701
